FAERS Safety Report 4719440-6 (Version None)
Quarter: 2005Q3

REPORT INFORMATION
  Report Type: 
  Country: None (occurrence: None)
  Receive Date: 20050719
  Receipt Date: 20050705
  Transmission Date: 20060218
  Serious: Yes (Hospitalization, Other)
  Sender: FDA-Public Use
  Company Number: 2005098035

PATIENT
  Sex: Female
  Weight: 98.8842 kg

DRUGS (4)
  1. ZYRTEC [Suspect]
     Indication: HYPERSENSITIVITY
     Dosage: 1 IN 1 D ORAL
     Route: 048
  2. CELEBREX [Suspect]
     Indication: RHEUMATOID ARTHRITIS
     Dosage: 200 MG (200 MG, 1 IN 1 D) ORAL
     Route: 048
     Dates: start: 20020101
  3. NEURONTIN [Suspect]
     Indication: NERVE INJURY
     Dosage: 3600 MG (3 IN 1 D) ORAL
     Route: 048
     Dates: start: 20030101
  4. BEXTRA [Suspect]
     Indication: ILL-DEFINED DISORDER
     Dates: end: 20050101

REACTIONS (7)
  - BACK PAIN [None]
  - DIABETES MELLITUS [None]
  - HALLUCINATION [None]
  - INTERVERTEBRAL DISC DISORDER [None]
  - NERVE INJURY [None]
  - RHEUMATOID ARTHRITIS [None]
  - SPINAL FRACTURE [None]
